FAERS Safety Report 5358054-4 (Version None)
Quarter: 2007Q2

REPORT INFORMATION
  Report Type: 
  Country: None (occurrence: None)
  Receive Date: 20070530
  Receipt Date: 20061023
  Transmission Date: 20071010
  Serious: Yes (Hospitalization, Other)
  Sender: FDA-Public Use
  Company Number: US200611001066

PATIENT
  Age: 10 Year
  Sex: Female
  Weight: 28.1 kg

DRUGS (7)
  1. ZYPREXA [Suspect]
     Dosage: SEE IMAGE
     Dates: start: 19980101
  2. ZYPREXA [Suspect]
     Dosage: SEE IMAGE
     Dates: start: 19990101
  3. SEROQUEL [Concomitant]
  4. RISPERIDONE [Concomitant]
  5. THORAZINE [Concomitant]
  6. DEPAKOTE [Concomitant]
  7. .. [Concomitant]

REACTIONS (5)
  - BLOOD KETONE BODY [None]
  - DIABETES MELLITUS [None]
  - DIABETIC KETOACIDOSIS [None]
  - HYPERGLYCAEMIA [None]
  - VISION BLURRED [None]
